FAERS Safety Report 21345704 (Version 1)
Quarter: 2022Q3

REPORT INFORMATION
  Report Type: Spontaneous
  Country: US (occurrence: US)
  Receive Date: 20220916
  Receipt Date: 20220916
  Transmission Date: 20221026
  Serious: No
  Sender: FDA-Public Use
  Company Number: US-BAYER-2022A129850

PATIENT
  Age: 82 Year
  Sex: Male

DRUGS (1)
  1. MIRALAX [Suspect]
     Active Substance: POLYETHYLENE GLYCOL 3350
     Dosage: FOLLOWING THE INSTRUCTIONS IN THE LABEL, MIX IT WITH BEVERAGE VERY WELL AND DRINK IT. DOSE
     Route: 048
     Dates: start: 20220915

REACTIONS (1)
  - Expired product administered [Unknown]

NARRATIVE: CASE EVENT DATE: 20220915
